FAERS Safety Report 24050995 (Version 1)
Quarter: 2024Q3

REPORT INFORMATION
  Report Type: Spontaneous
  Country: EG (occurrence: EG)
  Receive Date: 20240704
  Receipt Date: 20240704
  Transmission Date: 20241017
  Serious: Yes (Life-Threatening, Hospitalization, Other)
  Sender: HIKMA
  Company Number: EG-HIKMA PHARMACEUTICALS USA INC.-EG-H14001-24-05808

PATIENT

DRUGS (2)
  1. PACLITAXEL [Suspect]
     Active Substance: PACLITAXEL
     Indication: Breast cancer
     Dosage: 135 MILLIGRAM, EVERY 7 DAYS
     Route: 041
     Dates: start: 20240429
  2. PACLITAXEL [Suspect]
     Active Substance: PACLITAXEL
     Dosage: 135 MILLIGRAM, EVERY 7 DAYS
     Route: 041
     Dates: start: 20240505

REACTIONS (3)
  - Apnoea [Recovered/Resolved]
  - Hypotension [Recovered/Resolved]
  - Hyperhidrosis [Recovered/Resolved]

NARRATIVE: CASE EVENT DATE: 20240505
